FAERS Safety Report 5353815-X (Version None)
Quarter: 2007Q2

REPORT INFORMATION
  Report Type: 
  Country: None (occurrence: None)
  Receive Date: 20070612
  Receipt Date: 20070611
  Transmission Date: 20071010
  Serious: Yes (Death, Hospitalization)
  Sender: FDA-Public Use
  Company Number: FR-BRISTOL-MYERS SQUIBB COMPANY-13809819

PATIENT
  Age: 81 Year
  Sex: Female

DRUGS (3)
  1. COUMADIN [Suspect]
     Route: 048
     Dates: end: 20061111
  2. RIFADIN [Concomitant]
     Indication: TUBERCULOSIS
  3. OFLOCET [Concomitant]
     Indication: TUBERCULOSIS
     Dates: start: 20061027, end: 20061113

REACTIONS (10)
  - BILIARY TRACT INFECTION [None]
  - DEMENTIA [None]
  - DRUG TOXICITY [None]
  - HEPATITIS TOXIC [None]
  - INTERNATIONAL NORMALISED RATIO INCREASED [None]
  - INTERVERTEBRAL DISCITIS [None]
  - LUNG DISORDER [None]
  - OVERDOSE [None]
  - PERITONITIS [None]
  - SEPTIC SHOCK [None]
